FAERS Safety Report 15764624 (Version 1)
Quarter: 2018Q4

REPORT INFORMATION
  Report Type: Spontaneous
  Country: US (occurrence: US)
  Receive Date: 20181227
  Receipt Date: 20181227
  Transmission Date: 20190205
  Serious: No
  Sender: FDA-Public Use
  Company Number: None

PATIENT
  Sex: Female
  Weight: 54 kg

DRUGS (1)
  1. LAMOTRIGINE. [Suspect]
     Active Substance: LAMOTRIGINE
     Indication: ANXIETY DISORDER
     Dosage: ?          QUANTITY:1 TABLET(S);?
     Route: 048
     Dates: start: 20181001

REACTIONS (8)
  - Sleep paralysis [None]
  - Nightmare [None]
  - Menstrual disorder [None]
  - Libido decreased [None]
  - Middle insomnia [None]
  - Parasomnia [None]
  - Hallucination [None]
  - Poor quality sleep [None]
